FAERS Safety Report 9280255 (Version 1)
Quarter: 2013Q2

REPORT INFORMATION
  Report Type: Spontaneous
  Country: US (occurrence: None)
  Receive Date: 20130507
  Receipt Date: 20130507
  Transmission Date: 20140414
  Serious: Yes (Disabling)
  Sender: FDA-Public Use
  Company Number: None

PATIENT
  Age: 73 Year
  Sex: Female
  Weight: 83.46 kg

DRUGS (1)
  1. TAMIFLU 75MG GENENTECH [Suspect]
     Dosage: 1 CAPSULE; 1 TWICE A DAY
     Dates: start: 20130214, end: 20130218

REACTIONS (2)
  - Vertigo [None]
  - Tinnitus [None]
